FAERS Safety Report 4373975-7 (Version None)
Quarter: 2004Q2

REPORT INFORMATION
  Report Type: 
  Country: None (occurrence: None)
  Receive Date: 20040603
  Receipt Date: 20040513
  Transmission Date: 20050107
  Serious: Yes (Death)
  Sender: FDA-Public Use
  Company Number: FR_040504109

PATIENT
  Age: 73 Year
  Sex: Male

DRUGS (6)
  1. ZYPREXA [Suspect]
     Indication: PSYCHOTIC DISORDER
     Dosage: 10 MG/1 DAY
     Dates: start: 20031204, end: 20040202
  2. DEPAMINE (VALPROMIDE) [Concomitant]
  3. MOTILIUM [Concomitant]
  4. PARKINANE (TRIHEXYPHENIDYL HYDROCHLORIDE) [Concomitant]
  5. LORAZEPAM [Concomitant]
  6. RYTHMOL [Concomitant]

REACTIONS (3)
  - AGITATION [None]
  - CATATONIA [None]
  - REGRESSIVE BEHAVIOUR [None]
